FAERS Safety Report 19187065 (Version 1)
Quarter: 2021Q2

REPORT INFORMATION
  Report Type: Spontaneous
  Country: US (occurrence: US)
  Receive Date: 20210428
  Receipt Date: 20210428
  Transmission Date: 20210717
  Serious: No
  Sender: FDA-Public Use
  Company Number: US-SA-2021SA137808

PATIENT
  Age: 20 Year
  Sex: Female

DRUGS (1)
  1. ALLEGRA ALLERGY [Suspect]
     Active Substance: FEXOFENADINE HYDROCHLORIDE
     Indication: DERMATITIS ALLERGIC
     Dosage: DRUG STRUCTURE DOSAGE : 180MG DRUG INTERVAL DOSAGE : ONCE

REACTIONS (1)
  - Urticaria [Recovered/Resolved]
